FAERS Safety Report 24091297 (Version 2)
Quarter: 2024Q3

REPORT INFORMATION
  Report Type: Spontaneous
  Country: US (occurrence: US)
  Receive Date: 20240715
  Receipt Date: 20240723
  Transmission Date: 20241017
  Serious: Yes (Hospitalization)
  Sender: KARYOPHARM THERAPEUTICS
  Company Number: US-KARYOPHARM-2024KPT001305

PATIENT

DRUGS (6)
  1. XPOVIO [Suspect]
     Active Substance: SELINEXOR
     Indication: Plasma cell myeloma
     Dosage: 80 MG WEEKLY ON DAYS 1,8,15,22
     Route: 048
     Dates: start: 20231106
  2. TRAMADOL [Concomitant]
     Active Substance: TRAMADOL\TRAMADOL HYDROCHLORIDE
  3. XGEVA [Concomitant]
     Active Substance: DENOSUMAB
  4. LOPERAMIDE [Concomitant]
     Active Substance: LOPERAMIDE
  5. CARFILZOMIB [Concomitant]
     Active Substance: CARFILZOMIB
     Dosage: UNK
     Dates: end: 20240610
  6. CARFILZOMIB [Concomitant]
     Active Substance: CARFILZOMIB

REACTIONS (4)
  - Fall [Recovered/Resolved]
  - Dizziness [Recovered/Resolved]
  - Syncope [Recovered/Resolved]
  - Escherichia urinary tract infection [Unknown]

NARRATIVE: CASE EVENT DATE: 20240501
